FAERS Safety Report 6456153-7 (Version None)
Quarter: 2009Q4

REPORT INFORMATION
  Report Type: 
  Country: None (occurrence: None)
  Receive Date: 20091125
  Receipt Date: 20091117
  Transmission Date: 20100525
  Serious: Yes (Death, Hospitalization)
  Sender: FDA-Public Use
  Company Number: US-WYE-H12175909

PATIENT
  Sex: Female

DRUGS (1)
  1. EFFEXOR XR [Suspect]
     Route: 048

REACTIONS (4)
  - DEATH [None]
  - FALL [None]
  - HIP FRACTURE [None]
  - MYOCARDIAL INFARCTION [None]
